FAERS Safety Report 12443200 (Version 3)
Quarter: 2016Q3

REPORT INFORMATION
  Report Type: Spontaneous
  Country: JP (occurrence: JP)
  Receive Date: 20160607
  Receipt Date: 20160810
  Transmission Date: 20161109
  Serious: Yes (Other)
  Sender: FDA-Public Use
  Company Number: JP-GLAXOSMITHKLINE-JP2016JPN079421

PATIENT
  Age: 44 Year
  Sex: Female
  Weight: 46 kg

DRUGS (6)
  1. ROXIMAIN [Concomitant]
     Indication: ACNE
     Dosage: 150 MG, BID
     Dates: start: 20160512, end: 20160609
  2. TRANEXAMIC ACID. [Concomitant]
     Active Substance: TRANEXAMIC ACID
     Indication: CHLOASMA
     Dosage: 250 MG, TID
     Dates: start: 20160512
  3. HIRUDOID LOTION [Concomitant]
     Indication: DERMATITIS ATOPIC
     Dosage: UNK
  4. DALACIN [Concomitant]
     Active Substance: CLINDAMYCIN\CLINDAMYCIN PHOSPHATE
     Dosage: UNK
  5. ALLEGRA [Concomitant]
     Active Substance: FEXOFENADINE HYDROCHLORIDE
     Indication: DERMATITIS ATOPIC
     Dosage: 60 MG, BID
  6. DUAC GEL [Suspect]
     Active Substance: BENZOYL PEROXIDE\CLINDAMYCIN PHOSPHATE
     Indication: ACNE
     Dosage: UNK, QD
     Route: 050
     Dates: start: 20160512, end: 20160522

REACTIONS (9)
  - Application site pruritus [Unknown]
  - Papule [Recovered/Resolved]
  - Dermatitis [Recovered/Resolved]
  - Dermatitis contact [Recovered/Resolved]
  - Erythema [Unknown]
  - Eyelid oedema [Unknown]
  - Blister [Unknown]
  - Effusion [Unknown]
  - Pruritus generalised [Unknown]

NARRATIVE: CASE EVENT DATE: 20160515
